FAERS Safety Report 24058846 (Version 3)
Quarter: 2024Q3

REPORT INFORMATION
  Report Type: Spontaneous
  Country: AU (occurrence: AU)
  Receive Date: 20240708
  Receipt Date: 20240725
  Transmission Date: 20241017
  Serious: Yes (Other)
  Sender: INTERCEPT PHARMACEUTICALS
  Company Number: AU-ADVANZ PHARMA-202406005368

PATIENT
  Sex: Female

DRUGS (2)
  1. OCALIVA [Suspect]
     Active Substance: OBETICHOLIC ACID
     Dosage: UNK (OCALIVA)
     Route: 048
  2. OCALIVA [Suspect]
     Active Substance: OBETICHOLIC ACID
     Dosage: UNK (OCALIVA, RESTARTED AND STOPPED)
     Route: 048

REACTIONS (2)
  - Stevens-Johnson syndrome [Unknown]
  - Condition aggravated [Unknown]
